FAERS Safety Report 18980559 (Version 8)
Quarter: 2023Q4

REPORT INFORMATION
  Report Type: Spontaneous
  Country: US (occurrence: US)
  Receive Date: 20210308
  Receipt Date: 20231211
  Transmission Date: 20240109
  Serious: No
  Sender: FDA-Public Use
  Company Number: US-VERTEX PHARMACEUTICALS-2021-003567

PATIENT
  Age: 42 Year
  Sex: Female
  Weight: 60 kg

DRUGS (13)
  1. TRIKAFTA [Suspect]
     Active Substance: ELEXACAFTOR\IVACAFTOR\TEZACAFTOR
     Indication: Cystic fibrosis
     Dosage: 2 ORANGE TAB AM; 1 BLUE TAB PM
     Route: 048
     Dates: start: 20191125
  2. XANAX [Concomitant]
     Active Substance: ALPRAZOLAM
     Dosage: UNK
  3. IRON [Concomitant]
     Active Substance: IRON
     Dosage: UNK
  4. VITAMIN B12 [Concomitant]
     Active Substance: CYANOCOBALAMIN
     Dosage: UNK
  5. MAGNESIUM [Concomitant]
     Active Substance: MAGNESIUM
     Dosage: UNK
  6. VITAMIN D [Concomitant]
     Active Substance: VITAMIN D NOS
     Dosage: 50000 INTERNATIONAL UNIT, TWICE PER WEEK
  7. FIASP [Concomitant]
     Active Substance: INSULIN ASPART
     Dosage: UNK
  8. TRAZODONE [Concomitant]
     Active Substance: TRAZODONE HYDROCHLORIDE
     Dosage: 50 MILLIGRAM
     Route: 048
  9. ADDERALL [Concomitant]
     Active Substance: AMPHETAMINE ASPARTATE\AMPHETAMINE SULFATE\DEXTROAMPHETAMINE SACCHARATE\DEXTROAMPHETAMINE SULFATE
     Dosage: 10 MILLIGRAM
     Route: 048
  10. MYDAYIS [Concomitant]
     Active Substance: AMPHETAMINE ASPARTATE\AMPHETAMINE SULFATE\DEXTROAMPHETAMINE SACCHARATE\DEXTROAMPHETAMINE SULFATE
     Dosage: UNK
  11. ZOLOFT [Concomitant]
     Active Substance: SERTRALINE HYDROCHLORIDE
     Dosage: UNK
  12. LEXAPRO [Concomitant]
     Active Substance: ESCITALOPRAM OXALATE
     Dosage: 20 MILLIGRAM
     Route: 048
  13. INSULIN NOS [Concomitant]
     Active Substance: INSULIN NOS
     Indication: Diabetes mellitus

REACTIONS (12)
  - Negative thoughts [Unknown]
  - Tooth loss [Unknown]
  - Tooth infection [Unknown]
  - Dental caries [Not Recovered/Not Resolved]
  - Tooth disorder [Not Recovered/Not Resolved]
  - Poor peripheral circulation [Not Recovered/Not Resolved]
  - Splinter [Unknown]
  - Gingival discolouration [Not Recovered/Not Resolved]
  - Dry mouth [Unknown]
  - Adverse event following immunisation [Unknown]
  - Pain in extremity [Unknown]
  - Depression [Unknown]

NARRATIVE: CASE EVENT DATE: 20191101
